FAERS Safety Report 4396033-4 (Version None)
Quarter: 2004Q3

REPORT INFORMATION
  Report Type: 
  Country: None (occurrence: None)
  Receive Date: 20040708
  Receipt Date: 20040630
  Transmission Date: 20050211
  Serious: Yes (Death)
  Sender: FDA-Public Use
  Company Number: PERC20040012

PATIENT
  Age: 49 Year
  Sex: Male
  Weight: 58.9676 kg

DRUGS (3)
  1. OXYCODONE HCL [Suspect]
  2. ETHANOL [Suspect]
  3. DIPHENHYDRAMINE [Concomitant]

REACTIONS (11)
  - ACCIDENT [None]
  - BLOOD CHLORIDE INCREASED [None]
  - BLOOD ETHANOL [None]
  - BLOOD POTASSIUM INCREASED [None]
  - DRUG TOXICITY [None]
  - EXCORIATION [None]
  - PANCREATIC DISORDER [None]
  - PULMONARY CONGESTION [None]
  - PULMONARY OEDEMA [None]
  - SCAR [None]
  - VENTRICULAR HYPERTROPHY [None]
